FAERS Safety Report 9296004 (Version 3)
Quarter: 2013Q3

REPORT INFORMATION
  Report Type: Spontaneous
  Country: US (occurrence: US)
  Receive Date: 20130517
  Receipt Date: 20130718
  Transmission Date: 20140515
  Serious: Yes (Hospitalization, Other)
  Sender: FDA-Public Use
  Company Number: US-CELGENEUS-163-21880-13051838

PATIENT
  Age: 57 Year
  Sex: Female

DRUGS (2)
  1. REVLIMID [Suspect]
     Indication: PLASMA CELL MYELOMA
     Dosage: 25 MILLIGRAM
     Route: 048
     Dates: start: 20120815
  2. PRAVACHOL [Concomitant]
     Indication: BLOOD CHOLESTEROL
     Route: 065

REACTIONS (5)
  - Dizziness [Unknown]
  - Dehydration [Unknown]
  - Abdominal discomfort [Unknown]
  - Pericardial effusion [Not Recovered/Not Resolved]
  - Diarrhoea [Not Recovered/Not Resolved]
